FAERS Safety Report 22218729 (Version 2)
Quarter: 2023Q2

REPORT INFORMATION
  Report Type: Spontaneous
  Country: None (occurrence: DE)
  Receive Date: 20230417
  Receipt Date: 20230417
  Transmission Date: 20230722
  Serious: Yes (Congenital Anomaly)
  Sender: FDA-Public Use
  Company Number: DE-Ascend Therapeutics US, LLC-2140454

PATIENT
  Age: 1 Day
  Sex: Male
  Weight: 4.27 kg

DRUGS (13)
  1. ESTROGEL [Suspect]
     Active Substance: ESTRADIOL
     Indication: Product used for unknown indication
     Route: 064
     Dates: start: 20210704, end: 20210927
  2. ESTRADIOL VALERATE [Suspect]
     Active Substance: ESTRADIOL VALERATE
     Route: 064
     Dates: start: 20210704, end: 20210927
  3. PROGESTERONE [Suspect]
     Active Substance: PROGESTERONE
     Route: 064
     Dates: start: 20210704, end: 20210927
  4. BOOSTRIX [Concomitant]
     Active Substance: TETANUS TOXOID, REDUCED DIPHTHERIA TOXOID AND ACELLULAR PERTUSSIS VACCINE, ADSORBED ANTIGENS
     Route: 064
     Dates: start: 20220209, end: 20220209
  5. influvac(INFLUENZA VACCINE INACT SAG 3V) [Concomitant]
     Route: 064
     Dates: start: 20211013, end: 20211013
  6. Vaxzevria(COVID-19 VACCINE NRVV AD (CHADOX1 NCOV-19)) [Concomitant]
     Route: 064
  7. PROGESTERONE [Concomitant]
     Active Substance: PROGESTERONE
     Route: 064
     Dates: start: 20210915, end: 20210915
  8. HEPARIN [Concomitant]
     Active Substance: HEPARIN SODIUM
     Route: 064
     Dates: start: 20210714, end: 20210927
  9. l-thyroxin(LEVOTHYROXINE SODIUM) [Concomitant]
     Route: 064
     Dates: start: 20210704, end: 20220404
  10. FOLSAURE(FOLIC ACID) [Concomitant]
     Route: 064
     Dates: start: 20210702, end: 20220404
  11. Omeprazol Mylan(OMEPRAZOLE) [Concomitant]
     Route: 064
     Dates: start: 20220111, end: 20220404
  12. Comirnaty monovalent (TOZINAMERAN) [Concomitant]
     Route: 064
     Dates: start: 20211211, end: 20211211
  13. riopan-gel(MAGALDRATE) [Concomitant]
     Route: 064

REACTIONS (3)
  - Pulmonary artery stenosis [Unknown]
  - Atrial septal defect [Unknown]
  - Foetal exposure during pregnancy [Unknown]
